FAERS Safety Report 24560982 (Version 1)
Quarter: 2024Q4

REPORT INFORMATION
  Report Type: Spontaneous
  Country: US (occurrence: US)
  Receive Date: 20241029
  Receipt Date: 20241029
  Transmission Date: 20250114
  Serious: Yes (Life-Threatening, Hospitalization)
  Sender: DR REDDYS
  Company Number: None

PATIENT
  Sex: Male

DRUGS (2)
  1. IBUPROFEN [Suspect]
     Active Substance: IBUPROFEN
     Indication: Product used for unknown indication
     Dosage: IBUPROFEN (TOTAL DOSE: 120 G OR 1666 MG/KG), INGESTION
     Route: 048
     Dates: start: 202202, end: 202202
  2. DIPHENHYDRAMINE [Suspect]
     Active Substance: DIPHENHYDRAMINE
     Indication: Product used for unknown indication
     Dosage: DIPHENHYDRAMINE (TOTAL DOSE: 350 MG OR 5 MG/KG), INGESTION
     Route: 048
     Dates: start: 202202, end: 202202

REACTIONS (16)
  - Acute respiratory distress syndrome [Unknown]
  - Pulmonary sequestration [Unknown]
  - Multiple organ dysfunction syndrome [Unknown]
  - Loss of consciousness [Unknown]
  - Electrocardiogram QT prolonged [Unknown]
  - Metabolic acidosis [Unknown]
  - Respiratory acidosis [Unknown]
  - Bradycardia [Recovered/Resolved]
  - Cardiac arrest [Recovered/Resolved]
  - Hyperkalaemia [Unknown]
  - Overdose [Unknown]
  - Renal impairment [Unknown]
  - Nodal rhythm [Unknown]
  - Acidosis [Unknown]
  - Hypotension [Unknown]
  - Bundle branch block right [Unknown]

NARRATIVE: CASE EVENT DATE: 20220201
